FAERS Safety Report 8831097 (Version 1)
Quarter: 2012Q4

REPORT INFORMATION
  Report Type: Spontaneous
  Country: US (occurrence: None)
  Receive Date: 20121005
  Receipt Date: 20121005
  Transmission Date: 20130627
  Serious: No
  Sender: FDA-Public Use
  Company Number: None

PATIENT
  Sex: Male
  Weight: 83.92 kg

DRUGS (5)
  1. METHYLPHENIDATE ER [Suspect]
     Indication: ATTENTION DEFICIT-HYPERACTIVITY DISORDER
     Dosage: 10MG 2TABS Qd
     Route: 048
     Dates: start: 20120412
  2. METHYLPHENIDATE ER [Suspect]
     Indication: ATTENTION DEFICIT-HYPERACTIVITY DISORDER
     Dates: start: 20120802
  3. METHYLPHENIDATE ER [Suspect]
     Indication: ATTENTION DEFICIT-HYPERACTIVITY DISORDER
     Dates: start: 20120816
  4. ADDERALL [Concomitant]
  5. WELLBUTRIN [Concomitant]

REACTIONS (1)
  - Drug ineffective [None]
